FAERS Safety Report 7203515-6 (Version None)
Quarter: 2010Q4

REPORT INFORMATION
  Report Type: 
  Country: None (occurrence: None)
  Receive Date: 20101230
  Receipt Date: 20101222
  Transmission Date: 20110411
  Serious: Yes (Hospitalization)
  Sender: FDA-Public Use
  Company Number: DE-BRISTOL-MYERS SQUIBB COMPANY-15463300

PATIENT
  Age: 71 Year
  Sex: Male

DRUGS (3)
  1. CETUXIMAB [Suspect]
     Indication: NON-SMALL CELL LUNG CANCER
     Dosage: 5MG/ML; RECENT DOSE ON 13DEC2010 (2ND INF).
     Route: 042
     Dates: start: 20101206
  2. CISPLATIN [Suspect]
     Indication: NON-SMALL CELL LUNG CANCER
     Route: 042
     Dates: start: 20101206
  3. GEMCITABINE [Suspect]
     Indication: NON-SMALL CELL LUNG CANCER
     Dosage: RECENT DOSE ON 13DEC2010 (2ND INF); DAY 1 AND DAY 8 OF EACH 3 WEEK CYCLE.
     Route: 042
     Dates: start: 20101206

REACTIONS (1)
  - EPISTAXIS [None]
